FAERS Safety Report 6813424-X (Version None)
Quarter: 2010Q3

REPORT INFORMATION
  Report Type: 
  Country: None (occurrence: None)
  Receive Date: 20100701
  Receipt Date: 20100629
  Transmission Date: 20110219
  Serious: Yes (Hospitalization)
  Sender: FDA-Public Use
  Company Number: NZ-SANOFI-AVENTIS-2010SA037574

PATIENT
  Age: 14 Year
  Sex: Male

DRUGS (2)
  1. LANTUS [Suspect]
  2. NOVORAPID [Suspect]

REACTIONS (2)
  - HOSPITALISATION [None]
  - HYPERGLYCAEMIA [None]
